FAERS Safety Report 5126978-9 (Version None)
Quarter: 2006Q4

REPORT INFORMATION
  Report Type: 
  Country: None (occurrence: None)
  Receive Date: 20061013
  Receipt Date: 20060711
  Transmission Date: 20070319
  Serious: Yes (Other)
  Sender: FDA-Public Use
  Company Number: US-AVENTIS-200615768US

PATIENT
  Sex: Female
  Weight: 50 kg

DRUGS (13)
  1. LANTUS [Suspect]
     Indication: DIABETES MELLITUS INSULIN-DEPENDENT
     Dates: start: 20010101
  2. OPTICLIK (INSULIN INJECTION PEN) [Suspect]
     Indication: DIABETES MELLITUS INSULIN-DEPENDENT
     Dates: start: 20060601
  3. FOSAMAX [Concomitant]
     Dosage: DOSE: UNK
  4. RAPAMUNE [Concomitant]
     Dosage: DOSE: UNK
  5. VYTORIN [Concomitant]
     Dosage: DOSE: UNK
  6. LISINOPRIL [Concomitant]
     Dosage: DOSE: UNK
  7. PREDNISONE TAB [Concomitant]
     Dosage: DOSE: UNK
  8. SENSIPAR [Concomitant]
     Dosage: DOSE: UNK
  9. LASIX [Concomitant]
     Dosage: DOSE: UNK
  10. ZANTAC [Concomitant]
     Dosage: DOSE: UNK
  11. IMURAN [Concomitant]
     Dosage: DOSE: UNK
  12. LOPRESSOR [Concomitant]
     Dosage: DOSE: UNK
  13. NOVOLOG [Concomitant]

REACTIONS (5)
  - BLOOD GLUCOSE INCREASED [None]
  - CHOLECYSTECTOMY [None]
  - DEVICE MALFUNCTION [None]
  - GALLBLADDER OPERATION [None]
  - PHARMACEUTICAL PRODUCT COMPLAINT [None]
